FAERS Safety Report 4778385-6 (Version None)
Quarter: 2005Q3

REPORT INFORMATION
  Report Type: 
  Country: None (occurrence: None)
  Receive Date: 20050926
  Receipt Date: 20050616
  Transmission Date: 20060218
  Serious: Yes (Life-Threatening, Hospitalization, Other)
  Sender: FDA-Public Use
  Company Number: FR-GLAXOSMITHKLINE-B0384876A

PATIENT
  Age: 73 Year
  Sex: Male
  Weight: 74 kg

DRUGS (2)
  1. AVANDAMET [Suspect]
     Indication: DIABETES MELLITUS NON-INSULIN-DEPENDENT
     Route: 048
     Dates: start: 20050101, end: 20050101
  2. ZESTORETIC [Concomitant]
     Indication: HYPERTENSION
     Dosage: 1UNIT PER DAY
     Route: 048

REACTIONS (4)
  - ATRIOVENTRICULAR BLOCK [None]
  - BRADYCARDIA [None]
  - DYSPNOEA [None]
  - FATIGUE [None]
